FAERS Safety Report 21651885 (Version 1)
Quarter: 2022Q4

REPORT INFORMATION
  Report Type: Spontaneous
  Country: US (occurrence: None)
  Receive Date: 20221123
  Receipt Date: 20221123
  Transmission Date: 20230112
  Serious: No
  Sender: FDA-Public Use
  Company Number: None

PATIENT
  Age: 56 Year
  Sex: Female

DRUGS (1)
  1. HUMIRA [Suspect]
     Active Substance: ADALIMUMAB
     Indication: Rheumatoid arthritis
     Dosage: OTHER FREQUENCY : EVERY 14 DAYS ;?
     Route: 058
     Dates: start: 201903

REACTIONS (6)
  - Device defective [None]
  - Device malfunction [None]
  - Injection site pruritus [None]
  - Injection site pain [None]
  - Condition aggravated [None]
  - Product dose omission issue [None]

NARRATIVE: CASE EVENT DATE: 20221118
